FAERS Safety Report 26116501 (Version 1)
Quarter: 2025Q4

REPORT INFORMATION
  Report Type: Spontaneous
  Country: US (occurrence: None)
  Receive Date: 20251202
  Receipt Date: 20251202
  Transmission Date: 20260118
  Serious: Yes (Life-Threatening)
  Sender: FDA-CTU
  Company Number: None

PATIENT
  Age: 34 Year
  Sex: Male

DRUGS (1)
  1. REMICADE [Suspect]
     Active Substance: INFLIXIMAB
     Dosage: OTHER QUANTITY : UNKNOWN WE DID NOT FILL?OTHER FREQUENCY : UNKNOWN WE DID NOT FILL ?

REACTIONS (1)
  - Hypersensitivity [None]
